FAERS Safety Report 8496714-7 (Version None)
Quarter: 2012Q3

REPORT INFORMATION
  Report Type: 
  Country: None (occurrence: None)
  Receive Date: 20120709
  Receipt Date: 20120706
  Transmission Date: 20120928
  Serious: Yes (Other)
  Sender: FDA-Public Use
  Company Number: US-PFIZER INC-2012162652

PATIENT
  Sex: Female
  Weight: 66 kg

DRUGS (4)
  1. LYRICA [Suspect]
     Indication: NECK PAIN
     Dosage: UNK, 1X/DAY
     Route: 048
     Dates: start: 20120101, end: 20120101
  2. TOPAMAX [Concomitant]
     Indication: DEPRESSION
     Dosage: UNK
  3. VENLAFAXINE [Concomitant]
     Indication: DEPRESSION
     Dosage: 150 MG, 2X/DAY
  4. SIMVASTATIN [Concomitant]
     Indication: BLOOD CHOLESTEROL INCREASED
     Dosage: UNK

REACTIONS (2)
  - ACTIVITIES OF DAILY LIVING IMPAIRED [None]
  - FIBROMYALGIA [None]
